FAERS Safety Report 5300366-4 (Version None)
Quarter: 2007Q2

REPORT INFORMATION
  Report Type: 
  Country: None (occurrence: None)
  Receive Date: 20070413
  Receipt Date: 20070413
  Transmission Date: 20071010
  Serious: Yes (Death)
  Sender: FDA-Public Use
  Company Number: None

PATIENT
  Age: 46 Year
  Sex: Female
  Weight: 45.3597 kg

DRUGS (1)
  1. LARIAM [Suspect]

REACTIONS (6)
  - ABNORMAL DREAMS [None]
  - ADVERSE DRUG REACTION [None]
  - COMPLETED SUICIDE [None]
  - DEPRESSION [None]
  - HALLUCINATION [None]
  - SUICIDAL IDEATION [None]
